FAERS Safety Report 14682836 (Version 1)
Quarter: 2018Q1

REPORT INFORMATION
  Report Type: Report from Study
  Country: DK (occurrence: DK)
  Receive Date: 20180327
  Receipt Date: 20180327
  Transmission Date: 20180509
  Serious: Yes (Death, Other)
  Sender: FDA-Public Use
  Company Number: DK-ROCHE-2091450

PATIENT

DRUGS (8)
  1. OXALIPLATIN. [Suspect]
     Active Substance: OXALIPLATIN
     Indication: ADENOCARCINOMA PANCREAS
     Route: 065
  2. CAPECITABINE. [Suspect]
     Active Substance: CAPECITABINE
     Indication: ADENOCARCINOMA PANCREAS
     Route: 065
  3. TS-1 [Suspect]
     Active Substance: GIMERACIL\OTERACIL\TEGAFUR
     Indication: ADENOCARCINOMA PANCREAS
     Route: 065
  4. NAB-PACLITAXEL [Suspect]
     Active Substance: PACLITAXEL
     Indication: ADENOCARCINOMA PANCREAS
     Route: 065
  5. FLUOROURACIL. [Suspect]
     Active Substance: FLUOROURACIL
     Indication: ADENOCARCINOMA PANCREAS
     Route: 065
  6. LEUCOVORIN CALCIUM. [Suspect]
     Active Substance: LEUCOVORIN CALCIUM
     Indication: ADENOCARCINOMA PANCREAS
     Route: 065
  7. GEMCITABINE [Suspect]
     Active Substance: GEMCITABINE\GEMCITABINE HYDROCHLORIDE
     Indication: ADENOCARCINOMA PANCREAS
     Route: 065
  8. IRINOTECAN HYDROCHLORIDE. [Suspect]
     Active Substance: IRINOTECAN HYDROCHLORIDE
     Indication: ADENOCARCINOMA PANCREAS
     Route: 065

REACTIONS (13)
  - Vomiting [Unknown]
  - Mucosal inflammation [Unknown]
  - Pyrexia [Unknown]
  - Diarrhoea [Unknown]
  - Pulmonary embolism [Unknown]
  - Neutropenia [Unknown]
  - Fatigue [Unknown]
  - Palmar-plantar erythrodysaesthesia syndrome [Unknown]
  - Febrile neutropenia [Fatal]
  - Thrombocytopenia [Unknown]
  - Infection [Unknown]
  - Nausea [Unknown]
  - Deep vein thrombosis [Unknown]
